FAERS Safety Report 9717188 (Version 1)
Quarter: 2013Q4

REPORT INFORMATION
  Report Type: Other
  Country: TR (occurrence: TR)
  Receive Date: 20131127
  Receipt Date: 20131127
  Transmission Date: 20140711
  Serious: Yes (Other)
  Sender: FDA-Public Use
  Company Number: TR-US-EMD SERONO, INC.-7253070

PATIENT
  Age: 23 Year
  Sex: Female

DRUGS (16)
  1. OVITRELLE [Suspect]
     Indication: IN VITRO FERTILISATION
  2. PREDNISONE [Suspect]
     Indication: IMMUNOSUPPRESSION
     Dosage: LESS THAN 15 MG PER DAY
  3. EUTHYROX [Suspect]
     Indication: PRODUCT USED FOR UNKNOWN INDICATION
  4. PREDNISOLONE [Concomitant]
     Indication: IMMUNOSUPPRESSION
  5. PREDNISOLONE [Concomitant]
     Dosage: FOR THE FIRST 12 MONTHS
  6. PREDNISOLONE [Concomitant]
  7. TACROLIMUS [Concomitant]
     Indication: IMMUNOSUPPRESSION
  8. TACROLIMUS [Concomitant]
  9. MYCOPHENOLATE MOFETIL [Concomitant]
     Indication: IMMUNOSUPPRESSION
  10. AZATHIOPRINE [Concomitant]
     Indication: IMMUNOSUPPRESSION
     Dosage: LESS THAN 2 MG PER KG
  11. AZATHIOPRINE [Concomitant]
  12. PROGESTERONE [Concomitant]
     Indication: PRODUCT USED FOR UNKNOWN INDICATION
  13. CLEXANE [Concomitant]
     Indication: ENDOMETRIAL DISORDER
  14. PENTOXIFYLLINE [Concomitant]
     Indication: ENDOMETRIAL DISORDER
  15. VITAMIN E                          /00110501/ [Concomitant]
     Indication: ENDOMETRIAL DISORDER
  16. DOSTINEX [Concomitant]
     Indication: PRODUCT USED FOR UNKNOWN INDICATION

REACTIONS (3)
  - Urinary tract infection [Unknown]
  - Abortion spontaneous [Unknown]
  - Maternal exposure timing unspecified [Recovered/Resolved]
